FAERS Safety Report 23449373 (Version 1)
Quarter: 2024Q1

REPORT INFORMATION
  Report Type: Spontaneous
  Country: CN (occurrence: CN)
  Receive Date: 20240129
  Receipt Date: 20240129
  Transmission Date: 20240410
  Serious: Yes (Other)
  Sender: FDA-Public Use
  Company Number: None

PATIENT
  Age: 47 Year
  Sex: Male
  Weight: 69.5 kg

DRUGS (2)
  1. OLANZAPINE [Suspect]
     Active Substance: OLANZAPINE
     Indication: Psychotic symptom
     Dosage: 15MG,QD
     Route: 048
     Dates: start: 20231218
  2. VALPROATE SODIUM [Suspect]
     Active Substance: VALPROATE SODIUM
     Indication: Mood swings
     Dosage: 500MG,QD
     Route: 048
     Dates: start: 20231213, end: 20240116

REACTIONS (1)
  - Lipids increased [Recovering/Resolving]

NARRATIVE: CASE EVENT DATE: 20240102
